FAERS Safety Report 4687611-3 (Version None)
Quarter: 2005Q2

REPORT INFORMATION
  Report Type: 
  Country: None (occurrence: None)
  Receive Date: 20050610
  Receipt Date: 20050302
  Transmission Date: 20051028
  Serious: Yes (Other)
  Sender: FDA-Public Use
  Company Number: JP-JNJFOC-20050600338

PATIENT
  Sex: Male
  Weight: 61 kg

DRUGS (6)
  1. REMICADE [Suspect]
     Route: 042
  2. REMICADE [Suspect]
     Route: 042
  3. REMICADE [Suspect]
     Indication: CROHN'S DISEASE
     Route: 042
  4. PENTASA [Concomitant]
     Indication: CROHN'S DISEASE
     Route: 049
  5. ACINON [Concomitant]
     Route: 049
  6. ENTERAL NUTRITION [Concomitant]

REACTIONS (2)
  - BREAST ADENOMA [None]
  - THYROID NEOPLASM [None]
